FAERS Safety Report 18064730 (Version 1)
Quarter: 2020Q3

REPORT INFORMATION
  Report Type: Spontaneous
  Country: US (occurrence: US)
  Receive Date: 20200723
  Receipt Date: 20200723
  Transmission Date: 20201103
  Serious: Yes (Other)
  Sender: FDA-Public Use
  Company Number: None

PATIENT
  Sex: Male

DRUGS (5)
  1. NORCO 10/325 MG [Concomitant]
     Dates: start: 20190226
  2. BACTRIM [Concomitant]
     Active Substance: SULFAMETHOXAZOLE\TRIMETHOPRIM
     Dates: start: 20191016
  3. ERIVEDGE [Suspect]
     Active Substance: VISMODEGIB
     Indication: SKIN CANCER
     Route: 048
  4. MUPIROCIN 2% OINTMENT [Concomitant]
     Active Substance: MUPIROCIN
     Dates: start: 20200420
  5. MULTIVITAMIN [Concomitant]
     Active Substance: VITAMINS

REACTIONS (9)
  - Taste disorder [None]
  - Arthralgia [None]
  - Decreased appetite [None]
  - Fatigue [None]
  - Alopecia [None]
  - Diarrhoea [None]
  - Nausea [None]
  - Constipation [None]
  - Vomiting [None]
